FAERS Safety Report 8000305-1 (Version None)
Quarter: 2011Q4

REPORT INFORMATION
  Report Type: 
  Country: None (occurrence: None)
  Receive Date: 20111216
  Receipt Date: 20111213
  Transmission Date: 20120403
  Serious: Yes (Hospitalization)
  Sender: FDA-Public Use
  Company Number: 7100450

PATIENT
  Age: 38 Year
  Sex: Female

DRUGS (4)
  1. LEVOTHYROXINE SODIUM [Suspect]
     Indication: AUTOIMMUNE THYROIDITIS
     Dosage: 25 MCG (DAILY), ORAL,  ORAL
     Route: 048
     Dates: start: 20111203, end: 20111204
  2. LEVOTHYROXINE SODIUM [Suspect]
     Indication: HYPOTHYROIDISM
     Dosage: 25 MCG (DAILY), ORAL,  ORAL
     Route: 048
     Dates: start: 20111203, end: 20111204
  3. LEVOTHYROXINE SODIUM [Suspect]
     Indication: AUTOIMMUNE THYROIDITIS
     Dosage: 25 MCG (DAILY), ORAL,  ORAL
     Route: 048
     Dates: start: 20111101, end: 20111127
  4. LEVOTHYROXINE SODIUM [Suspect]
     Indication: HYPOTHYROIDISM
     Dosage: 25 MCG (DAILY), ORAL,  ORAL
     Route: 048
     Dates: start: 20111101, end: 20111127

REACTIONS (3)
  - NO THERAPEUTIC RESPONSE [None]
  - DYSPEPSIA [None]
  - HYPERSENSITIVITY [None]
